FAERS Safety Report 7792533-5 (Version None)
Quarter: 2011Q3

REPORT INFORMATION
  Report Type: 
  Country: None (occurrence: None)
  Receive Date: 20110930
  Receipt Date: 20110930
  Transmission Date: 20111222
  Serious: Yes (Disabling)
  Sender: FDA-Public Use
  Company Number: None

PATIENT
  Age: 73 Year
  Sex: Female
  Weight: 42.1845 kg

DRUGS (2)
  1. FOSAMAX [Suspect]
     Indication: OSTEOPOROSIS
     Dosage: 70 MG WEEKLY PILL
     Dates: start: 19990101, end: 20060101
  2. ZOMETA [Suspect]
     Indication: BREAST CANCER STAGE IV
     Dosage: 4MG 1X MONTH FOR 2 YEARS INFUSION
     Dates: start: 20080827, end: 20101105

REACTIONS (3)
  - OSTEONECROSIS OF JAW [None]
  - EATING DISORDER [None]
  - DISEASE PROGRESSION [None]
